FAERS Safety Report 6110140-7 (Version None)
Quarter: 2009Q1

REPORT INFORMATION
  Report Type: 
  Country: None (occurrence: None)
  Receive Date: 20090310
  Receipt Date: 20090302
  Transmission Date: 20090719
  Serious: Yes (Disabling, Other)
  Sender: FDA-Public Use
  Company Number: US-GENENTECH-277500

PATIENT
  Age: 63 Year
  Sex: Female

DRUGS (4)
  1. AVASTIN [Suspect]
     Indication: BREAST CANCER METASTATIC
     Dosage: 10 MG/KG, UNK
     Route: 042
     Dates: start: 20080602, end: 20081020
  2. TAXOL [Concomitant]
     Indication: BREAST CANCER METASTATIC
     Dosage: 90 MG/M2, Q3W
     Route: 042
     Dates: start: 20080505
  3. ZOMETA [Concomitant]
     Indication: BREAST CANCER METASTATIC
     Dosage: 4 MG, 1/MONTH
     Route: 042
     Dates: start: 20080514, end: 20081210
  4. DECADRON [Concomitant]
     Indication: BREAST CANCER METASTATIC
     Dosage: 20 MG, UNK
     Route: 042

REACTIONS (1)
  - OSTEONECROSIS [None]
